FAERS Safety Report 6212398-2 (Version None)
Quarter: 2009Q2

REPORT INFORMATION
  Report Type: 
  Country: None (occurrence: None)
  Receive Date: 20090601
  Receipt Date: 20090601
  Transmission Date: 20091009
  Serious: Yes (Hospitalization)
  Sender: FDA-Public Use
  Company Number: None

PATIENT
  Sex: Female

DRUGS (2)
  1. FLUOXETINE [Suspect]
     Indication: ANXIETY
     Dosage: ONE TABLET DAILY PO
     Route: 048
     Dates: start: 20090401, end: 20090502
  2. FLUOXETINE [Suspect]
     Indication: DEPRESSION
     Dosage: ONE TABLET DAILY PO
     Route: 048
     Dates: start: 20090401, end: 20090502

REACTIONS (3)
  - ALCOHOL USE [None]
  - INCORRECT DOSE ADMINISTERED [None]
  - INTENTIONAL SELF-INJURY [None]
